FAERS Safety Report 8350386-0 (Version None)
Quarter: 2012Q2

REPORT INFORMATION
  Report Type: 
  Country: None (occurrence: None)
  Receive Date: 20120510
  Receipt Date: 20120430
  Transmission Date: 20120825
  Serious: Yes (Other)
  Sender: FDA-Public Use
  Company Number: IT-VALEANT-2012VX002039

PATIENT
  Age: 75 Year
  Sex: Male

DRUGS (9)
  1. DOCETAXEL [Suspect]
     Route: 065
  2. DOCETAXEL [Suspect]
     Route: 065
  3. CETUXIMAB [Suspect]
     Route: 065
  4. FLUOROURACIL [Suspect]
     Route: 065
  5. FLUOROURACIL [Suspect]
     Route: 065
     Dates: start: 20110301, end: 20110701
  6. CISPLATIN [Suspect]
     Route: 065
     Dates: start: 20110301, end: 20110701
  7. FILGRASTIM [Concomitant]
     Route: 065
     Dates: start: 20110301
  8. CETUXIMAB [Suspect]
     Route: 065
  9. GRANULOCYTE COLONY STIMULATING FACTOR [Concomitant]
     Route: 065

REACTIONS (4)
  - RENAL INJURY [None]
  - MUCOSAL INFLAMMATION [None]
  - SKIN TOXICITY [None]
  - HYPERCREATININAEMIA [None]
